FAERS Safety Report 7406970-1 (Version None)
Quarter: 2011Q2

REPORT INFORMATION
  Report Type: 
  Country: None (occurrence: None)
  Receive Date: 20110411
  Receipt Date: 20101021
  Transmission Date: 20111010
  Serious: Yes (Hospitalization)
  Sender: FDA-Public Use
  Company Number: US-BAYER-201010015NA

PATIENT
  Age: 36 Year
  Sex: Female
  Weight: 86.168 kg

DRUGS (16)
  1. SYNTHROID [Concomitant]
  2. GABAPENTIN [Concomitant]
  3. PROZAC [Concomitant]
     Indication: DEPRESSION
     Dosage: 40 MG, QD
  4. FEXOFENADINE [Concomitant]
  5. YAZ [Suspect]
     Indication: PRODUCT USED FOR UNKNOWN INDICATION
     Route: 048
  6. ANTIHISTAMINES [Concomitant]
  7. OCELLA [Suspect]
     Indication: PRODUCT USED FOR UNKNOWN INDICATION
     Route: 048
  8. ALBUTEROL [Concomitant]
     Dosage: 90 ?G, UNK
     Route: 055
  9. WELLBUTRIN [Concomitant]
  10. NASONEX [Concomitant]
     Dosage: 50 ?G, UNK
  11. YASMIN [Suspect]
     Indication: MENSTRUAL CYCLE MANAGEMENT
     Route: 048
     Dates: start: 20030101, end: 20080101
  12. SINGULAIR [Concomitant]
  13. ALPRAZOLAM [Concomitant]
     Dosage: 0.5 MG, UNK
  14. ASPIRIN [Concomitant]
  15. TRICOR [Concomitant]
     Indication: BLOOD CHOLESTEROL INCREASED
     Dosage: 145 MG, UNK
     Dates: start: 20070101, end: 20080101
  16. PROMETHAZINE W/ CODEINE [Concomitant]

REACTIONS (2)
  - GALLBLADDER INJURY [None]
  - BILIARY DYSKINESIA [None]
